FAERS Safety Report 8858602 (Version 1)
Quarter: 2012Q4

REPORT INFORMATION
  Report Type: 
  Country: US (occurrence: US)
  Receive Date: 20121024
  Receipt Date: 20121024
  Transmission Date: 20130627
  Serious: Yes (Death, Hospitalization)
  Sender: FDA-Public Use
  Company Number: US-ROCHE-1134095

PATIENT
  Sex: Male

DRUGS (2)
  1. RAPTIVA [Suspect]
     Indication: PUSTULAR PSORIASIS
     Route: 065
     Dates: start: 20071214, end: 20090109
  2. RAPTIVA [Suspect]
     Indication: PSORIASIS

REACTIONS (5)
  - Death [Fatal]
  - Infection [Unknown]
  - Skin burning sensation [Unknown]
  - Pruritus [Unknown]
  - Pain [Unknown]
